FAERS Safety Report 7506841-6 (Version None)
Quarter: 2011Q2

REPORT INFORMATION
  Report Type: 
  Country: None (occurrence: None)
  Receive Date: 20110526
  Receipt Date: 20110519
  Transmission Date: 20111010
  Serious: Yes (Hospitalization)
  Sender: FDA-Public Use
  Company Number: B0715943A

PATIENT
  Age: 40 Year
  Sex: Male

DRUGS (2)
  1. HEPTODIN [Suspect]
     Indication: HEPATITIS B
     Route: 048
  2. ADEFOVIR DIPIVOXIL KIT [Concomitant]
     Indication: HEPATITIS B

REACTIONS (3)
  - DISCOMFORT [None]
  - BLOOD CREATINE PHOSPHOKINASE INCREASED [None]
  - DRUG INEFFECTIVE [None]
